FAERS Safety Report 6993963-1 (Version None)
Quarter: 2010Q3

REPORT INFORMATION
  Report Type: 
  Country: None (occurrence: None)
  Receive Date: 20100917
  Receipt Date: 20070604
  Transmission Date: 20110219
  Serious: Yes (Hospitalization, Other)
  Sender: FDA-Public Use
  Company Number: US-ASTRAZENECA-2006UW11482

PATIENT
  Age: 10179 Day
  Sex: Female
  Weight: 175.3 kg

DRUGS (15)
  1. SEROQUEL [Suspect]
     Indication: MENTAL DISORDER
     Route: 048
     Dates: start: 20020807
  2. SEROQUEL [Suspect]
     Route: 048
     Dates: start: 20030101, end: 20060401
  3. ZYPREXA [Suspect]
     Dates: start: 20011102
  4. ZYPREXA [Suspect]
     Dates: start: 20030101, end: 20060101
  5. ABILIFY [Concomitant]
     Dates: start: 20060101
  6. RISPERDAL [Concomitant]
     Dosage: 1-15 MG
     Dates: start: 20020313
  7. RISPERDAL [Concomitant]
     Dates: start: 20060101
  8. TOPROL-XL [Concomitant]
     Dosage: 50-100 MG
     Route: 048
     Dates: start: 20010105
  9. TRILEPTAL [Concomitant]
     Route: 048
     Dates: start: 20020807
  10. ZOLOFT [Concomitant]
     Route: 048
     Dates: start: 20020807
  11. GLUCOPHAGE [Concomitant]
     Dosage: 500-1000MG
     Route: 048
     Dates: start: 20020807
  12. ATIVAN [Concomitant]
     Dosage: 0.5-1.0 MG
     Route: 048
     Dates: start: 20020807
  13. LORATADINE [Concomitant]
     Route: 048
     Dates: start: 20060224
  14. SINGULAIR [Concomitant]
     Route: 048
     Dates: start: 20060224
  15. KLONOPIN [Concomitant]
     Dates: start: 20020807

REACTIONS (3)
  - DIABETES MELLITUS [None]
  - DIABETES MELLITUS INADEQUATE CONTROL [None]
  - DIABETIC KETOACIDOSIS [None]
